FAERS Safety Report 7464746-3 (Version None)
Quarter: 2011Q2

REPORT INFORMATION
  Report Type: 
  Country: None (occurrence: None)
  Receive Date: 20110509
  Receipt Date: 20110426
  Transmission Date: 20111010
  Serious: Yes (Hospitalization, Other)
  Sender: FDA-Public Use
  Company Number: US-ELI_LILLY_AND_COMPANY-US200909000656

PATIENT
  Sex: Male

DRUGS (7)
  1. FORTEO [Suspect]
     Indication: OSTEOPOROSIS
     Dosage: 20 UG, DAILY (1/D)
     Route: 058
     Dates: start: 20090701
  2. FORTEO [Suspect]
     Dosage: 20 UG, DAILY (1/D)
     Route: 058
  3. TOPROL-XL [Concomitant]
  4. FORTEO [Suspect]
     Dosage: 20 UG, DAILY (1/D)
     Route: 058
  5. FORTEO [Suspect]
     Dosage: 20 UG, DAILY (1/D)
     Route: 058
  6. FORTEO [Suspect]
     Dosage: 20 UG, DAILY (1/D)
     Route: 058
     Dates: end: 20101201
  7. FORTEO [Suspect]
     Dosage: 20 UG, DAILY (1/D)
     Route: 058

REACTIONS (12)
  - PAIN IN EXTREMITY [None]
  - BONE PAIN [None]
  - GAIT DISTURBANCE [None]
  - PAIN [None]
  - BRONCHITIS [None]
  - MOBILITY DECREASED [None]
  - SINUS DISORDER [None]
  - MYALGIA [None]
  - CORONARY ARTERY OCCLUSION [None]
  - CHEST PAIN [None]
  - ARTHRALGIA [None]
  - MYOCARDIAL INFARCTION [None]
